FAERS Safety Report 9746602 (Version 4)
Quarter: 2014Q3

REPORT INFORMATION
  Report Type: Spontaneous
  Country: US (occurrence: US)
  Receive Date: 20131211
  Receipt Date: 20140710
  Transmission Date: 20150326
  Serious: Yes (Hospitalization, Other)
  Sender: FDA-Public Use
  Company Number: US-009507513-1312USA005174

PATIENT
  Sex: Female
  Weight: 81.63 kg

DRUGS (2)
  1. NUVARING [Suspect]
     Active Substance: ETHINYL ESTRADIOL\ETONOGESTREL
     Indication: CONTRACEPTION
     Dosage: 0.015MG-0.120, EVERY FOUR WEEKS
     Route: 067
     Dates: start: 20120926, end: 20121022
  2. NUVARING [Suspect]
     Active Substance: ETHINYL ESTRADIOL\ETONOGESTREL
     Indication: MENSTRUAL CYCLE MANAGEMENT

REACTIONS (10)
  - Ventricular tachycardia [Recovered/Resolved]
  - Cardiac disorder [Recovered/Resolved]
  - Pulmonary embolism [Unknown]
  - Fibrin D dimer increased [Unknown]
  - Coagulopathy [Unknown]
  - Thrombosis [Unknown]
  - Incorrect drug administration duration [Unknown]
  - Headache [Unknown]
  - Off label use [Unknown]
  - Deep vein thrombosis [Unknown]

NARRATIVE: CASE EVENT DATE: 2012
